FAERS Safety Report 5786005-7 (Version None)
Quarter: 2008Q2

REPORT INFORMATION
  Report Type: 
  Country: None (occurrence: None)
  Receive Date: 20080624
  Receipt Date: 20080624
  Transmission Date: 20081010
  Serious: Yes (Life-Threatening, Hospitalization)
  Sender: FDA-Public Use
  Company Number: PHHO2006IT21345

PATIENT
  Sex: Male
  Weight: 111 kg

DRUGS (2)
  1. SPH100 SPH+TAB [Suspect]
     Indication: ESSENTIAL HYPERTENSION
     Dosage: 300/25 MG, QD
     Route: 048
     Dates: start: 20061113, end: 20061215
  2. ALISKIREN [Suspect]
     Indication: ESSENTIAL HYPERTENSION
     Dosage: UNK, UNK
     Route: 048
     Dates: start: 20061113, end: 20061215

REACTIONS (8)
  - ACUTE CORONARY SYNDROME [None]
  - CHEST PAIN [None]
  - CORONARY ARTERY DISEASE [None]
  - CORONARY ARTERY OCCLUSION [None]
  - DISEASE PROGRESSION [None]
  - ELECTROCARDIOGRAM ST SEGMENT ELEVATION [None]
  - LEFT VENTRICULAR HYPERTROPHY [None]
  - TROPONIN INCREASED [None]
